FAERS Safety Report 4728920-9 (Version None)
Quarter: 2005Q3

REPORT INFORMATION
  Report Type: 
  Country: None (occurrence: None)
  Receive Date: 20050729
  Receipt Date: 20050517
  Transmission Date: 20060218
  Serious: No
  Sender: FDA-Public Use
  Company Number: US-GLAXOSMITHKLINE-A0558983A

PATIENT
  Age: 22 Year
  Sex: Female

DRUGS (8)
  1. IMITREX [Suspect]
     Indication: MIGRAINE
     Dosage: 50MG AS REQUIRED
     Route: 048
     Dates: start: 20050201, end: 20050401
  2. TOPAMAX [Concomitant]
  3. BACLOFEN [Concomitant]
  4. PROZAC [Concomitant]
  5. MINOCYCLINE [Concomitant]
  6. ALLEGRA [Concomitant]
  7. ALBUTEROL [Concomitant]
  8. FLOVENT [Concomitant]

REACTIONS (1)
  - DRUG INEFFECTIVE [None]
